FAERS Safety Report 16878142 (Version 1)
Quarter: 2019Q4

REPORT INFORMATION
  Report Type: Spontaneous
  Country: US (occurrence: US)
  Receive Date: 20191002
  Receipt Date: 20191002
  Transmission Date: 20200122
  Serious: Yes (Hospitalization)
  Sender: FDA-Public Use
  Company Number: US-ARRAY-2019-06410

PATIENT

DRUGS (2)
  1. MEKTOVI [Suspect]
     Active Substance: BINIMETINIB
     Indication: ANAEMIA
     Dosage: 45 MG, BID
     Route: 048
     Dates: start: 20190913
  2. BRAFTOVI [Suspect]
     Active Substance: ENCORAFENIB
     Indication: ANAEMIA
     Dosage: 450 MG, QD
     Route: 048
     Dates: start: 20190913

REACTIONS (5)
  - Nausea [Unknown]
  - Vomiting [Unknown]
  - Pyrexia [Unknown]
  - Chills [Unknown]
  - Incoherent [Unknown]

NARRATIVE: CASE EVENT DATE: 20190924
